FAERS Safety Report 25974006 (Version 1)
Quarter: 2025Q4

REPORT INFORMATION
  Report Type: Other
  Country: US (occurrence: US)
  Receive Date: 20251029
  Receipt Date: 20251029
  Transmission Date: 20260118
  Serious: No
  Sender: AMNEAL
  Company Number: US-AMNEAL PHARMACEUTICALS-2025-AMRX-03178

PATIENT
  Sex: Male

DRUGS (1)
  1. TELMISARTAN [Suspect]
     Active Substance: TELMISARTAN
     Indication: Hypertension
     Dosage: 20 MILLIGRAM
     Route: 065

REACTIONS (4)
  - Disturbance in sexual arousal [Unknown]
  - Sleep disorder [Unknown]
  - Therapeutic response decreased [Unknown]
  - Product substitution issue [Unknown]
